FAERS Safety Report 7574575-8 (Version None)
Quarter: 2011Q2

REPORT INFORMATION
  Report Type: 
  Country: None (occurrence: None)
  Receive Date: 20110627
  Receipt Date: 20100315
  Transmission Date: 20111010
  Serious: No
  Sender: FDA-Public Use
  Company Number: US-BAYER-201016628NA

PATIENT

DRUGS (1)
  1. AVELOX [Suspect]
     Indication: FIBROMYALGIA

REACTIONS (2)
  - SWELLING [None]
  - PAIN [None]
